FAERS Safety Report 19599034 (Version 1)
Quarter: 2021Q3

REPORT INFORMATION
  Report Type: Spontaneous
  Country: US (occurrence: US)
  Receive Date: 20210723
  Receipt Date: 20210723
  Transmission Date: 20211014
  Serious: Yes (Other)
  Sender: FDA-Public Use
  Company Number: None

PATIENT
  Age: 39 Year
  Sex: Female
  Weight: 65.25 kg

DRUGS (3)
  1. TRANSDERM SCOP [Suspect]
     Active Substance: SCOPOLAMINE
     Indication: MOTION SICKNESS
     Dosage: ?QUANTITY:1 PATCH(ES);?OTHER FREQUENCY:1 PER 3 DAYS;?
     Route: 062
     Dates: start: 20210719, end: 20210723
  2. GINGER ALE [Concomitant]
  3. GINGER. [Concomitant]
     Active Substance: GINGER

REACTIONS (6)
  - Drug ineffective [None]
  - Vision blurred [None]
  - Photophobia [None]
  - Hallucination [None]
  - Impaired work ability [None]
  - Mydriasis [None]

NARRATIVE: CASE EVENT DATE: 20210721
